FAERS Safety Report 13516822 (Version 10)
Quarter: 2017Q4

REPORT INFORMATION
  Report Type: Spontaneous
  Country: US (occurrence: US)
  Receive Date: 20170505
  Receipt Date: 20171115
  Transmission Date: 20180320
  Serious: Yes (Other)
  Sender: FDA-Public Use
  Company Number: US-PFIZER INC-2017083658

PATIENT
  Age: 64 Year
  Sex: Male
  Weight: 80.73 kg

DRUGS (15)
  1. SUTENT [Suspect]
     Active Substance: SUNITINIB MALATE
     Dosage: 50 MG, DAILY (2 WEEKS ON/1WEEK OFF)
     Dates: start: 20170621, end: 20171106
  2. MEGACE [Concomitant]
     Active Substance: MEGESTROL ACETATE
     Dosage: UNK
  3. TYLENOL [Concomitant]
     Active Substance: ACETAMINOPHEN
     Dosage: 1000 MG, 4 TIMES A DAY (2 TAB, Q6H)
     Route: 048
  4. TRAMADOL. [Concomitant]
     Active Substance: TRAMADOL
     Dosage: UNK
  5. FERROUS SULFATE. [Concomitant]
     Active Substance: FERROUS SULFATE
     Dosage: 325 MG, DAILY (65 MG ELEMENTAL IRON)
     Route: 048
  6. ZOFRAN [Concomitant]
     Active Substance: ONDANSETRON HYDROCHLORIDE
     Indication: NAUSEA
     Dosage: UNK
  7. SUTENT [Suspect]
     Active Substance: SUNITINIB MALATE
     Dosage: 50 MG, CYCLIC (28 DAYS ON/14 DAYS OFF)
     Dates: start: 20170621
  8. ULTRAM [Concomitant]
     Active Substance: TRAMADOL HYDROCHLORIDE
     Indication: PAIN
     Dosage: 50 MG, AS NEEDED (Q6H; EVERY 6 HOURS)
     Route: 048
  9. ALEVE [Concomitant]
     Active Substance: NAPROXEN SODIUM
     Dosage: UNK
  10. ONDANSETRON [Concomitant]
     Active Substance: ONDANSETRON
     Dosage: UNK
  11. SUTENT [Suspect]
     Active Substance: SUNITINIB MALATE
     Dosage: 50 MG, CYCLIC (21 DAYS STRAIGHT)
     Dates: start: 20170509, end: 20170606
  12. SUTENT [Suspect]
     Active Substance: SUNITINIB MALATE
     Indication: RENAL CANCER METASTATIC
     Dosage: 50 MG, DAILY
     Route: 048
     Dates: start: 20170412, end: 20170426
  13. ASPIRIN. [Concomitant]
     Active Substance: ASPIRIN
     Dosage: UNK
  14. MIRALAX [Concomitant]
     Active Substance: POLYETHYLENE GLYCOL 3350
     Dosage: 17 G, 1X/DAY
  15. PROBIOTICS [Concomitant]
     Active Substance: PROBIOTICS NOS
     Dosage: 1 DF, DAILY
     Route: 048

REACTIONS (19)
  - Nausea [Recovering/Resolving]
  - Asthenia [Recovering/Resolving]
  - Blister [Recovering/Resolving]
  - Pneumonia [Unknown]
  - Stomatitis [Recovering/Resolving]
  - Oral mucosal blistering [Unknown]
  - Product use issue [Unknown]
  - Anaemia [Unknown]
  - Feeding disorder [Recovering/Resolving]
  - Dyspnoea [Unknown]
  - Neoplasm progression [Unknown]
  - Fatigue [Recovering/Resolving]
  - Sluggishness [Unknown]
  - Cough [Unknown]
  - White blood cell count decreased [Unknown]
  - Platelet count decreased [Recovering/Resolving]
  - Incision site pain [Recovering/Resolving]
  - Pleural effusion [Unknown]
  - Weight increased [Unknown]

NARRATIVE: CASE EVENT DATE: 2017
